FAERS Safety Report 23562227 (Version 1)
Quarter: 2024Q1

REPORT INFORMATION
  Report Type: Spontaneous
  Country: CN (occurrence: CN)
  Receive Date: 20240226
  Receipt Date: 20240226
  Transmission Date: 20240410
  Serious: Yes (Other)
  Sender: FDA-Public Use
  Company Number: CN-SA-2024SA061600

PATIENT
  Age: 52 Year
  Sex: Male
  Weight: 75 kg

DRUGS (10)
  1. PLAVIX [Suspect]
     Active Substance: CLOPIDOGREL BISULFATE
     Indication: Coronary artery disease
     Dosage: 75 MG, QD
     Route: 048
     Dates: start: 20231225, end: 20231228
  2. ENOXAPARIN SODIUM [Suspect]
     Active Substance: ENOXAPARIN SODIUM
     Indication: Cerebral infarction
     Dosage: 0.5 ML, BID
     Route: 058
     Dates: start: 20231225, end: 20231228
  3. NIFEDIPINE [Concomitant]
     Active Substance: NIFEDIPINE
     Dosage: UNK
  4. VALSARTAN [Concomitant]
     Active Substance: VALSARTAN
     Dosage: UNK
  5. CANAGLIFLOZIN [Concomitant]
     Active Substance: CANAGLIFLOZIN
     Dosage: UNK
  6. LINAGLIPTIN [Concomitant]
     Active Substance: LINAGLIPTIN
     Dosage: UNK
  7. CLOPIDOGREL [Concomitant]
     Active Substance: CLOPIDOGREL BISULFATE
     Dosage: UNK
  8. FINERENONE [Concomitant]
     Active Substance: FINERENONE
     Dosage: UNK
  9. YIN XING YE [Concomitant]
     Dosage: UNK
  10. SU XIAO JIU XIN [Concomitant]
     Dosage: UNK
     Route: 048

REACTIONS (3)
  - Aplastic anaemia [Unknown]
  - Pancytopenia [Unknown]
  - Occult blood positive [Unknown]

NARRATIVE: CASE EVENT DATE: 20231227
